FAERS Safety Report 8756763 (Version 1)
Quarter: 2012Q4

REPORT INFORMATION
  Report Type: 
  Country: US (occurrence: US)
  Receive Date: 20120828
  Receipt Date: 20120828
  Transmission Date: 20130627
  Serious: Yes (Hospitalization, Other)
  Sender: FDA-Public Use
  Company Number: US-BAYER-2012-087300

PATIENT
  Age: 34 Year
  Sex: Female
  Weight: 93.42 kg

DRUGS (9)
  1. YAZ [Suspect]
  2. YASMIN [Suspect]
  3. OCELLA [Suspect]
  4. PENICILLIN V POTASSIUM [Concomitant]
     Dosage: 500 mg tab, 1 po bid 10 days
     Route: 048
  5. PSEUDOEPHEDRINE [Concomitant]
     Dosage: 60 mg tab, 1 tid (three times a day) prn (as needed)
  6. TYLENOL W/CODEINE NO. 3 [Concomitant]
     Indication: PAIN
     Dosage: 300mg-30mg tab, 1 every 6 hours if needed
     Route: 048
  7. ATENOLOL [Concomitant]
     Indication: PALPITATIONS
     Dosage: 50 mg tab, QD
     Route: 048
  8. ALBUTEROL [Concomitant]
     Indication: WHEEZING
     Dosage: 2 puff(s), Q4HR prn
     Route: 045
  9. CETIRIZINE [Concomitant]
     Dosage: 10 mg tab qd
     Route: 048

REACTIONS (2)
  - Pulmonary embolism [Recovered/Resolved]
  - Deep vein thrombosis [None]
